FAERS Safety Report 7672511-7 (Version None)
Quarter: 2011Q3

REPORT INFORMATION
  Report Type: 
  Country: None (occurrence: None)
  Receive Date: 20110809
  Receipt Date: 20110725
  Transmission Date: 20111222
  Serious: Yes (Death)
  Sender: FDA-Public Use
  Company Number: AU-WATSON-2011-12201

PATIENT
  Age: 49 Year
  Sex: Female

DRUGS (3)
  1. EPIPEN [Suspect]
     Indication: ANAPHYLACTIC REACTION
     Dosage: 300 UG, UNKNOWN
     Route: 058
  2. PROMETHAZINE [Suspect]
     Indication: ANAPHYLACTIC REACTION
     Dosage: 50 MG, UNKNOWN
     Route: 030
  3. PREDNISONE [Suspect]
     Indication: ANAPHYLACTIC REACTION
     Dosage: 50 MG, UNKNOWN
     Route: 048

REACTIONS (1)
  - GAS GANGRENE [None]
